FAERS Safety Report 5375680-7 (Version None)
Quarter: 2007Q2

REPORT INFORMATION
  Report Type: 
  Country: None (occurrence: None)
  Receive Date: 20070627
  Receipt Date: 20070615
  Transmission Date: 20071010
  Serious: No
  Sender: FDA-Public Use
  Company Number: IT-GUERBET-20070021

PATIENT
  Age: 41 Year
  Sex: Male

DRUGS (1)
  1. DOTAREM: 07GD022A / MEGLUMINE GADOTERATE [Suspect]
     Dosage: INTRAVENOUS
     Route: 042
     Dates: start: 20070613, end: 20070613

REACTIONS (2)
  - DIZZINESS [None]
  - UNEVALUABLE EVENT [None]
